FAERS Safety Report 6607435-7 (Version None)
Quarter: 2010Q1

REPORT INFORMATION
  Report Type: 
  Country: None (occurrence: None)
  Receive Date: 20100301
  Receipt Date: 20100219
  Transmission Date: 20100710
  Serious: Yes (Hospitalization)
  Sender: FDA-Public Use
  Company Number: US-ELI_LILLY_AND_COMPANY-US201002005956

PATIENT
  Sex: Female
  Weight: 67.574 kg

DRUGS (14)
  1. PEMETREXED [Suspect]
     Indication: NON-SMALL CELL LUNG CANCER
     Dosage: 880 MG, OTHER
     Route: 042
     Dates: start: 20090416
  2. COMPAZINE [Concomitant]
     Indication: NAUSEA
     Dosage: 30 MG, EVERY 8 HRS
     Route: 048
     Dates: start: 20090330
  3. HYDROCODONE [Concomitant]
     Indication: BACK PAIN
     Route: 048
     Dates: start: 20080922
  4. LORAZEPAM [Concomitant]
     Indication: ANXIETY
     Dosage: 1.5 MG, EVERY 6 HRS
     Route: 048
     Dates: start: 20080922
  5. ZYRTEC [Concomitant]
     Indication: HYPERSENSITIVITY
     Dosage: 10 MG, DAILY (1/D)
     Route: 048
     Dates: start: 20081001
  6. CELEXA [Concomitant]
     Indication: DEPRESSION
     Dosage: 10 MG, DAILY (1/D)
     Route: 048
     Dates: start: 20081224
  7. VITAMIN B-12 [Concomitant]
     Indication: PROPHYLAXIS
     Dosage: 15.9 UG, OTHER
     Route: 030
     Dates: start: 20090305
  8. FOLIC ACID [Concomitant]
     Indication: PROPHYLAXIS
     Dosage: 800 MG, DAILY (1/D)
     Route: 048
     Dates: start: 20090305
  9. PROTONIX [Concomitant]
     Indication: DYSPEPSIA
     Dosage: 40 MG, DAILY (1/D)
     Route: 048
     Dates: start: 20090404
  10. AMOXICILLIN [Concomitant]
     Indication: EAR PAIN
     Dosage: 500 MG, 2/D
     Route: 048
     Dates: start: 20090407, end: 20090415
  11. DEXAMETHASONE [Concomitant]
     Indication: EAR PAIN
     Dosage: 2 GTT, 2/D
     Route: 001
     Dates: start: 20090407, end: 20090415
  12. DILAUDID [Concomitant]
     Indication: PAIN
     Dosage: 4 MG, EVERY 4 HRS
     Route: 048
     Dates: start: 20090403
  13. AREDIA [Concomitant]
     Indication: METASTASIS
     Dosage: 2.14 MG, OTHER
     Route: 042
     Dates: start: 20090119
  14. VITAMIN B6 [Concomitant]
     Indication: NEUROPATHY PERIPHERAL
     Dosage: 50 MG, 3/D
     Route: 048
     Dates: start: 20090318

REACTIONS (2)
  - ANAEMIA [None]
  - HYPOVOLAEMIA [None]
